FAERS Safety Report 4424515-5 (Version None)
Quarter: 2004Q3

REPORT INFORMATION
  Report Type: 
  Country: None (occurrence: None)
  Receive Date: 20040812
  Receipt Date: 20040729
  Transmission Date: 20050211
  Serious: Yes (Hospitalization)
  Sender: FDA-Public Use
  Company Number: JP-ROCHE-375746

PATIENT
  Age: 85 Year
  Sex: Male

DRUGS (1)
  1. TORSEMIDE [Suspect]
     Route: 048
     Dates: end: 20040625

REACTIONS (1)
  - HEPATIC ENZYME INCREASED [None]
